FAERS Safety Report 23827671 (Version 3)
Quarter: 2024Q3

REPORT INFORMATION
  Report Type: Spontaneous
  Country: US (occurrence: None)
  Receive Date: 20240507
  Receipt Date: 20240702
  Transmission Date: 20241017
  Serious: Yes (Other)
  Sender: ASTRAZENECA
  Company Number: 2024A106462

PATIENT
  Age: 38 Year
  Sex: Male

DRUGS (14)
  1. TAGRISSO [Suspect]
     Active Substance: OSIMERTINIB
     Indication: Non-small cell lung cancer
     Route: 048
     Dates: start: 20240309, end: 20240318
  2. NEXIUM [Suspect]
     Active Substance: ESOMEPRAZOLE MAGNESIUM
     Route: 048
  3. GILOTRIF [Suspect]
     Active Substance: AFATINIB
     Indication: Non-small cell lung cancer
     Route: 048
     Dates: start: 20231129
  4. GILOTRIF [Suspect]
     Active Substance: AFATINIB
     Indication: Lung neoplasm malignant
     Route: 048
     Dates: start: 20231129
  5. GILOTRIF [Suspect]
     Active Substance: AFATINIB
     Indication: Non-small cell lung cancer
     Route: 048
  6. GILOTRIF [Suspect]
     Active Substance: AFATINIB
     Indication: Lung neoplasm malignant
     Route: 048
  7. XANAX [Concomitant]
     Active Substance: ALPRAZOLAM
     Indication: Product used for unknown indication
  8. MORPHINE SULFATE [Concomitant]
     Active Substance: MORPHINE SULFATE
     Indication: Product used for unknown indication
  9. BENZOYL PEROXIDE\CLINDAMYCIN [Concomitant]
     Active Substance: BENZOYL PEROXIDE\CLINDAMYCIN
     Indication: Product used for unknown indication
  10. NEXIUM [Concomitant]
     Active Substance: ESOMEPRAZOLE MAGNESIUM
     Indication: Product used for unknown indication
  11. HYDROCODONE [Concomitant]
     Active Substance: HYDROCODONE
     Indication: Product used for unknown indication
  12. LIDOCAINE HYDROCHLORIDE [Concomitant]
     Active Substance: LIDOCAINE HYDROCHLORIDE
     Indication: Product used for unknown indication
  13. IBUPROFEN [Concomitant]
     Active Substance: IBUPROFEN
     Indication: Product used for unknown indication
  14. KEPPRA [Concomitant]
     Active Substance: LEVETIRACETAM

REACTIONS (31)
  - Colon cancer [Unknown]
  - Deep vein thrombosis [Unknown]
  - Gastric cancer [Unknown]
  - Renal cancer [Unknown]
  - Pulmonary oedema [Unknown]
  - Metastases to central nervous system [Recovering/Resolving]
  - Pneumonia [Unknown]
  - Thrombosis [Unknown]
  - Oral discomfort [Unknown]
  - Mouth ulceration [Recovering/Resolving]
  - Dermatitis acneiform [Unknown]
  - Feeling abnormal [Unknown]
  - Loose tooth [Unknown]
  - Blister [Recovering/Resolving]
  - Pulmonary pain [Unknown]
  - Gingival blister [Recovering/Resolving]
  - Fatigue [Recovering/Resolving]
  - Rash macular [Recovered/Resolved]
  - Mouth haemorrhage [Recovering/Resolving]
  - Anxiety [Recovering/Resolving]
  - Stress [Recovering/Resolving]
  - Skin disorder [Unknown]
  - Peripheral swelling [Unknown]
  - Middle insomnia [Unknown]
  - Oral pain [Unknown]
  - Feeding disorder [Unknown]
  - Toothache [Not Recovered/Not Resolved]
  - Oral mucosal blistering [Recovering/Resolving]
  - Gingival ulceration [Recovering/Resolving]
  - Infection [Unknown]
  - Bronchitis [Unknown]

NARRATIVE: CASE EVENT DATE: 20230101
